FAERS Safety Report 5113430-X (Version None)
Quarter: 2006Q3

REPORT INFORMATION
  Report Type: 
  Country: None (occurrence: None)
  Receive Date: 20060921
  Receipt Date: 20060921
  Transmission Date: 20061208
  Serious: Yes (Hospitalization, Other)
  Sender: FDA-Public Use
  Company Number: None

PATIENT
  Sex: Male

DRUGS (20)
  1. ALEMTUZUMAB 10 MG/ML [Suspect]
     Indication: KIDNEY TRANSPLANT REJECTION
     Dosage: 30 MG OVER 3 HOURS ONCE IV DRIP
     Route: 041
     Dates: start: 20060701, end: 20060701
  2. PREDNISONE TAB [Concomitant]
  3. TACROLIMUS [Concomitant]
  4. MYCOPHENOLIC ACID [Concomitant]
  5. SODIUM BICARBONATE [Concomitant]
  6. SEVELAMER [Concomitant]
  7. NEPHROCAP [Concomitant]
  8. DARBOPOEITIN [Concomitant]
  9. CIPROFLOXACIN [Concomitant]
  10. TRIMETHOPRIM + SULFAMETHOXAZOLE [Concomitant]
  11. VALGANCICLOVIR HCL [Concomitant]
  12. NYSTATIN [Concomitant]
  13. METOPROLOL [Concomitant]
  14. METOCLOPRAMIDE [Concomitant]
  15. OMEPRAZOLE [Concomitant]
  16. BISCODYL [Concomitant]
  17. SENNA [Concomitant]
  18. DOCUSATE [Concomitant]
  19. OXYCODONE HCL [Concomitant]
  20. TERAZOSIN HCL [Concomitant]

REACTIONS (3)
  - CHILLS [None]
  - DYSPNOEA [None]
  - INFUSION RELATED REACTION [None]
